FAERS Safety Report 9269320 (Version 2)
Quarter: 2013Q3

REPORT INFORMATION
  Report Type: Report from Study
  Country: PT (occurrence: PT)
  Receive Date: 20130503
  Receipt Date: 20130731
  Transmission Date: 20140515
  Serious: Yes (Hospitalization)
  Sender: FDA-Public Use
  Company Number: PT-CELGENEUS-130-C5013-13043671

PATIENT
  Age: 80 Year
  Sex: Female
  Weight: 78 kg

DRUGS (10)
  1. CC-5013 [Suspect]
     Indication: MYELODYSPLASTIC SYNDROME
     Dosage: 10 MILLIGRAM
     Route: 048
     Dates: start: 20121010
  2. CC-5013 [Suspect]
     Dosage: 10 MILLIGRAM
     Route: 048
     Dates: start: 20130326, end: 20130421
  3. CC-5013 [Suspect]
     Dosage: 5 MILLIGRAM
     Route: 048
     Dates: start: 20130430
  4. ASPIRINE [Concomitant]
     Indication: PROPHYLAXIS
     Dosage: 100 MILLIGRAM
     Route: 048
     Dates: start: 2000, end: 20130322
  5. SINEMET [Concomitant]
     Indication: PARKINSON^S DISEASE
     Dosage: 25/100MG
     Route: 048
     Dates: start: 2000
  6. RIVASTIGMINE [Concomitant]
     Indication: PARKINSON^S DISEASE
     Dosage: 25 MILLIGRAM
     Route: 061
     Dates: start: 20130328
  7. COAPROVEL [Concomitant]
     Indication: HYPERTENSION
     Dosage: 25/50MG
     Route: 048
     Dates: start: 2000
  8. IBUPROFEN [Concomitant]
     Indication: PRODUCT USED FOR UNKNOWN INDICATION
     Route: 065
  9. OMEPRAZOL [Concomitant]
     Indication: PRODUCT USED FOR UNKNOWN INDICATION
     Route: 065
  10. OMEPRAZOL [Concomitant]
     Indication: HAEMATEMESIS

REACTIONS (1)
  - Upper gastrointestinal haemorrhage [Recovered/Resolved]
